FAERS Safety Report 22236905 (Version 3)
Quarter: 2023Q2

REPORT INFORMATION
  Report Type: Report from Study
  Country: US (occurrence: US)
  Receive Date: 20230420
  Receipt Date: 20230629
  Transmission Date: 20230722
  Serious: Yes (Congenital Anomaly, Other)
  Sender: FDA-Public Use
  Company Number: US-ABBVIE-4732748

PATIENT
  Sex: Female
  Weight: 5.896 kg

DRUGS (1)
  1. HUMIRA [Suspect]
     Active Substance: ADALIMUMAB
     Indication: Maternal exposure timing unspecified
     Dosage: FORM STRENGTH: 40 MILLIGRAM
     Route: 063
     Dates: start: 20220809

REACTIONS (14)
  - Infantile haemangioma [Unknown]
  - Oligohydramnios [Unknown]
  - Exposure via breast milk [Unknown]
  - Foetal exposure during pregnancy [Unknown]
  - Premature baby [Unknown]
  - Blood disorder [Unknown]
  - Foetal growth restriction [Unknown]
  - Food allergy [Unknown]
  - Dysphonia [Unknown]
  - Aplasia [Unknown]
  - Rash [Unknown]
  - Vocal cord thickening [Unknown]
  - Unevaluable event [Unknown]
  - Multiple congenital abnormalities [Unknown]

NARRATIVE: CASE EVENT DATE: 20230412
